FAERS Safety Report 10398688 (Version 1)
Quarter: 2014Q3

REPORT INFORMATION
  Report Type: Spontaneous
  Country: US (occurrence: None)
  Receive Date: 20140818
  Receipt Date: 20140818
  Transmission Date: 20150326
  Serious: Yes (Hospitalization)
  Sender: FDA-Public Use
  Company Number: None

PATIENT
  Age: 72 Year
  Sex: Female
  Weight: 50 kg

DRUGS (1)
  1. VIDAZA [Suspect]
     Active Substance: AZACITIDINE
     Indication: ACUTE MYELOID LEUKAEMIA
     Route: 042
     Dates: start: 20140728, end: 20140801

REACTIONS (10)
  - Induration [None]
  - Catheter site pain [None]
  - Catheter site warmth [None]
  - Pyrexia [None]
  - Catheter site necrosis [None]
  - Catheter site oedema [None]
  - Catheter site related reaction [None]
  - Extravasation [None]
  - Catheter site erythema [None]
  - Inflammation [None]

NARRATIVE: CASE EVENT DATE: 20140802
